FAERS Safety Report 13274417 (Version 2)
Quarter: 2017Q2

REPORT INFORMATION
  Report Type: Spontaneous
  Country: JP (occurrence: JP)
  Receive Date: 20170227
  Receipt Date: 20170414
  Transmission Date: 20170830
  Serious: Yes (Death, Other)
  Sender: FDA-Public Use
  Company Number: JP-BRISTOL-MYERS SQUIBB COMPANY-BMS-2017-015716

PATIENT
  Age: 79 Year
  Sex: Male
  Weight: 52.3 kg

DRUGS (9)
  1. AMOXICILLIN HYDRATE [Concomitant]
     Active Substance: AMOXICILLIN
     Indication: MEDIASTINITIS
     Dosage: UNK, TID
     Route: 048
     Dates: start: 20170112, end: 20170210
  2. ZOLPIDEM TARTRATE. [Concomitant]
     Active Substance: ZOLPIDEM TARTRATE
     Indication: URINARY RETENTION
     Dosage: 10 MG, QD
     Route: 048
     Dates: start: 20170112, end: 20170210
  3. VASOLAN                            /00014302/ [Concomitant]
     Active Substance: VERAPAMIL HYDROCHLORIDE
     Indication: TACHYCARDIA
     Dosage: 40 MG, TID
     Route: 048
     Dates: start: 20170112, end: 20170210
  4. LANSOPRAZOLE. [Concomitant]
     Active Substance: LANSOPRAZOLE
     Indication: PEPTIC ULCER
     Dosage: 15 MG, QD
     Route: 048
     Dates: start: 20170112, end: 20170210
  5. URIEF [Concomitant]
     Active Substance: SILODOSIN
     Indication: BENIGN PROSTATIC HYPERPLASIA
     Dosage: 2 MG, QD
     Route: 048
     Dates: start: 20170112, end: 20170210
  6. MAGMITT [Concomitant]
     Active Substance: MAGNESIUM OXIDE
     Indication: CONSTIPATION
     Dosage: 500 MG, TID
     Route: 048
     Dates: start: 20170112, end: 20170209
  7. AMLODIPINE [Concomitant]
     Active Substance: AMLODIPINE BESYLATE
     Indication: HYPERTENSION
     Dosage: 5 MG, QD
     Route: 048
     Dates: start: 20170112, end: 20170210
  8. BESACOLIN [Concomitant]
     Active Substance: BETHANECHOL CHLORIDE
     Indication: URINARY RETENTION
     Dosage: 0.3 G, QD
     Route: 048
     Dates: start: 20170112, end: 20170210
  9. ELIQUIS [Suspect]
     Active Substance: APIXABAN
     Indication: CEREBROVASCULAR ACCIDENT PROPHYLAXIS
     Dosage: 2.5 MG, BID
     Route: 048
     Dates: start: 20170129, end: 20170210

REACTIONS (1)
  - Haematemesis [Fatal]

NARRATIVE: CASE EVENT DATE: 20170210
